FAERS Safety Report 6997627-X (Version None)
Quarter: 2010Q3

REPORT INFORMATION
  Report Type: 
  Country: None (occurrence: None)
  Receive Date: 20100918
  Receipt Date: 20091113
  Transmission Date: 20110219
  Serious: No
  Sender: FDA-Public Use
  Company Number: US-WYE-H12182209

PATIENT
  Sex: Female
  Weight: 131.66 kg

DRUGS (2)
  1. PRISTIQ [Suspect]
     Indication: DEPRESSION
     Route: 048
     Dates: start: 20090801
  2. SINGULAIR [Concomitant]

REACTIONS (3)
  - CRYING [None]
  - DIARRHOEA [None]
  - FLATULENCE [None]
